FAERS Safety Report 7510617-3 (Version None)
Quarter: 2011Q2

REPORT INFORMATION
  Report Type: 
  Country: None (occurrence: None)
  Receive Date: 20110530
  Receipt Date: 20110523
  Transmission Date: 20111010
  Serious: No
  Sender: FDA-Public Use
  Company Number: US-BIOGENIDEC-2011BI019519

PATIENT
  Age: 46 Year
  Sex: Male

DRUGS (2)
  1. AVONEX [Suspect]
     Indication: MULTIPLE SCLEROSIS
     Route: 030
     Dates: start: 20110520
  2. DICLOFENAC SODIUM [Concomitant]
     Indication: ANKYLOSING SPONDYLITIS

REACTIONS (5)
  - CHILLS [None]
  - HEMIPARESIS [None]
  - PERONEAL NERVE PALSY [None]
  - BLINDNESS UNILATERAL [None]
  - DYSURIA [None]
